FAERS Safety Report 17999624 (Version 1)
Quarter: 2020Q3

REPORT INFORMATION
  Report Type: Spontaneous
  Country: CA (occurrence: CA)
  Receive Date: 20200709
  Receipt Date: 20200709
  Transmission Date: 20201103
  Serious: Yes (Other)
  Sender: FDA-Public Use
  Company Number: CA-ORION CORPORATION ORION PHARMA-20_00009775

PATIENT
  Sex: Male

DRUGS (11)
  1. ATORVASTATIN [Concomitant]
     Active Substance: ATORVASTATIN
     Route: 065
  2. PRASUGREL HYDROCHLORIDE [Concomitant]
     Active Substance: PRASUGREL HYDROCHLORIDE
     Route: 065
  3. PREDNISONE. [Concomitant]
     Active Substance: PREDNISONE
     Route: 065
  4. FUROSEMIDE. [Concomitant]
     Active Substance: FUROSEMIDE
     Route: 065
  5. TAMSULOSIN [Concomitant]
     Active Substance: TAMSULOSIN
     Route: 065
  6. METHOTREXATE (TRADE NAME UNKNOWN) [Suspect]
     Active Substance: METHOTREXATE
     Indication: RHEUMATOID ARTHRITIS
     Route: 048
  7. HUMIRA [Suspect]
     Active Substance: ADALIMUMAB
     Indication: PRODUCT USED FOR UNKNOWN INDICATION
     Route: 058
  8. PLAQUENIL [Suspect]
     Active Substance: HYDROXYCHLOROQUINE SULFATE
     Indication: PRODUCT USED FOR UNKNOWN INDICATION
     Route: 065
  9. CALCIUM GLUCONATE. [Concomitant]
     Active Substance: CALCIUM GLUCONATE
     Route: 048
  10. ACETYLSALICYLIC ACID [Concomitant]
     Active Substance: ASPIRIN
     Route: 065
  11. EZETIMIBE. [Concomitant]
     Active Substance: EZETIMIBE
     Indication: HYPERCHOLESTEROLAEMIA
     Route: 065

REACTIONS (5)
  - Rheumatoid arthritis [Recovered/Resolved]
  - Latent tuberculosis [Recovered/Resolved]
  - Drug intolerance [Recovered/Resolved]
  - Hypertension [Recovered/Resolved]
  - Drug ineffective [Recovered/Resolved]
